FAERS Safety Report 4885655-X (Version None)
Quarter: 2005Q4

REPORT INFORMATION
  Report Type: 
  Country: None (occurrence: None)
  Receive Date: 20051220
  Receipt Date: 20041025
  Transmission Date: 20060501
  Serious: Yes (Other)
  Sender: FDA-Public Use
  Company Number: HQWYE160628OCT04

PATIENT
  Sex: Female

DRUGS (1)
  1. EFFEXOR XR [Suspect]
     Dosage: 75 MG-150 MG DAILY, ORAL
     Route: 048

REACTIONS (3)
  - FEELING ABNORMAL [None]
  - PETIT MAL EPILEPSY [None]
  - URTICARIA [None]
